FAERS Safety Report 4285883-0 (Version None)
Quarter: 2004Q1

REPORT INFORMATION
  Report Type: 
  Country: None (occurrence: None)
  Receive Date: 20040204
  Receipt Date: 20040204
  Transmission Date: 20041129
  Serious: No
  Sender: FDA-Public Use
  Company Number: None

PATIENT
  Age: 65 Year
  Sex: Male
  Weight: 68 kg

DRUGS (4)
  1. NATRECOR [Suspect]
     Indication: CARDIAC FAILURE CONGESTIVE
     Dosage: 2MCG/K BOLUS INTRAVENOUS; 0.01 MCG/KG MIN INTRAVENOUS
     Route: 042
     Dates: start: 20031203, end: 20031205
  2. MAGNESIUM SULFATE [Concomitant]
  3. KCL TAB [Concomitant]
  4. LOVENOX [Concomitant]

REACTIONS (1)
  - HYPOTENSION [None]
